FAERS Safety Report 5327601-0 (Version None)
Quarter: 2007Q2

REPORT INFORMATION
  Report Type: 
  Country: None (occurrence: None)
  Receive Date: 20070517
  Receipt Date: 20061016
  Transmission Date: 20071010
  Serious: Yes (Hospitalization)
  Sender: FDA-Public Use
  Company Number: US-JNJFOC-20061004253

PATIENT
  Age: 53 Year
  Sex: Female

DRUGS (3)
  1. TRAMADOL HCL [Suspect]
     Indication: HEADACHE
     Route: 048
  2. AMITRIPTYLINE HCL [Suspect]
     Indication: HEADACHE
     Route: 048
  3. NORTRIPTYLINE HCL [Suspect]
     Indication: HEADACHE
     Route: 048

REACTIONS (2)
  - ELECTROCARDIOGRAM QRS COMPLEX ABNORMAL [None]
  - MULTIPLE DRUG OVERDOSE [None]
